FAERS Safety Report 7636972-1 (Version None)
Quarter: 2011Q3

REPORT INFORMATION
  Report Type: 
  Country: None (occurrence: None)
  Receive Date: 20110726
  Receipt Date: 20110720
  Transmission Date: 20111222
  Serious: Yes (Death)
  Sender: FDA-Public Use
  Company Number: AU-ROXANE LABORATORIES, INC.-2011-RO-01025RO

PATIENT
  Age: 35 Year

DRUGS (8)
  1. METHADON AMIDONE HCL TAB [Suspect]
     Indication: DRUG WITHDRAWAL MAINTENANCE THERAPY
  2. FLUOXETINE [Suspect]
  3. QUETIAPINE [Suspect]
  4. BENZTROPINE MESYLATE [Suspect]
  5. CODEINE SUL TAB [Suspect]
  6. DIAZEPAM [Suspect]
  7. NORDIAZEPAM [Suspect]
  8. DRONABINOL [Suspect]

REACTIONS (1)
  - OVERDOSE [None]
